FAERS Safety Report 18645873 (Version 2)
Quarter: 2021Q1

REPORT INFORMATION
  Report Type: Report from Study
  Country: GB (occurrence: GB)
  Receive Date: 20201221
  Receipt Date: 20210115
  Transmission Date: 20210419
  Serious: Yes (Death, Other)
  Sender: FDA-Public Use
  Company Number: GB-PERRIGO-20GB017955

PATIENT
  Age: 48 Year
  Sex: Male

DRUGS (13)
  1. PREGABALIN. [Suspect]
     Active Substance: PREGABALIN
     Dosage: UNK
  2. ETIZOLAM [Suspect]
     Active Substance: ETIZOLAM
     Dosage: 4 UG/ML FEMORAL BLOOD CONCENTRATION
     Route: 048
  3. AMFETAMINE [Suspect]
     Active Substance: AMPHETAMINE
     Indication: PRODUCT USED FOR UNKNOWN INDICATION
     Dosage: 394 UG/ML FEMORAL BLOOD CONCENTRATION
  4. CODEINE [Suspect]
     Active Substance: CODEINE
     Dosage: 83 UG/ML FEMORAL BLOOD CONCENTRATION
  5. DIAZEPAM. [Suspect]
     Active Substance: DIAZEPAM
     Indication: PRODUCT USED FOR UNKNOWN INDICATION
     Dosage: 99 UG/ML FEMORAL BLOOD CONCENTRATION
  6. PARACETAMOL [Suspect]
     Active Substance: ACETAMINOPHEN
     Indication: PRODUCT USED FOR UNKNOWN INDICATION
     Dosage: {5000 UG/ML FEMORAL BLOOD CONCENTRATION
     Route: 065
  7. MORPHINE SULFATE. [Suspect]
     Active Substance: MORPHINE SULFATE
     Dosage: 6 UG/ML FEMORAL BLOOD CONCENTRATION
  8. OXAZEPAM. [Suspect]
     Active Substance: OXAZEPAM
     Indication: PRODUCT USED FOR UNKNOWN INDICATION
     Dosage: 29 UG/ML FEMORAL BLOOD CONCENTRATION
  9. NORDAZEPAM [Suspect]
     Active Substance: NORDAZEPAM
     Indication: PRODUCT USED FOR UNKNOWN INDICATION
     Dosage: 316 UG/ML FEMORAL BLOOD CONCENTRATION
  10. TEMAZEPAM. [Suspect]
     Active Substance: TEMAZEPAM
     Indication: PRODUCT USED FOR UNKNOWN INDICATION
     Dosage: 15 UG/ML FEMORAL BLOOD CONCENTRATION
  11. NORTRIPTYLINE [Suspect]
     Active Substance: NORTRIPTYLINE
     Indication: PRODUCT USED FOR UNKNOWN INDICATION
     Dosage: 283 UG/ML FEMORAL BLOOD CONCENTRATION
  12. METHADONE [Suspect]
     Active Substance: METHADONE HYDROCHLORIDE
     Dosage: UNK
  13. AMITRIPTYLINE [Suspect]
     Active Substance: AMITRIPTYLINE
     Indication: PRODUCT USED FOR UNKNOWN INDICATION
     Dosage: 307 UG/ML FEMORAL BLOOD CONCENTRATION

REACTIONS (2)
  - Toxicity to various agents [Fatal]
  - Drug abuse [Fatal]
